FAERS Safety Report 5476342-8 (Version None)
Quarter: 2007Q3

REPORT INFORMATION
  Report Type: 
  Country: None (occurrence: None)
  Receive Date: 20070914
  Receipt Date: 20070627
  Transmission Date: 20080115
  Serious: Yes (Other)
  Sender: FDA-Public Use
  Company Number: 07-189

PATIENT
  Age: 17 Year
  Sex: Female
  Weight: 72.5755 kg

DRUGS (6)
  1. ALEVE [Suspect]
     Indication: BACK PAIN
     Dosage: DAILY, ORAL
     Route: 048
     Dates: start: 20070601
  2. ALEVE [Suspect]
     Indication: PAIN
     Dosage: DAILY, ORAL
     Route: 048
     Dates: start: 20070601
  3. ALEVE [Suspect]
     Indication: TOOTHACHE
     Dosage: DAILY, ORAL
     Route: 048
     Dates: start: 20070601
  4. EXTRA STRENGTH TYLENOL, UNK, UNK [Suspect]
     Indication: BACK PAIN
     Dosage: DAILY, ORAL
     Route: 048
  5. EXTRA STRENGTH TYLENOL, UNK, UNK [Suspect]
     Indication: PAIN
     Dosage: DAILY, ORAL
     Route: 048
  6. EXTRA STRENGTH TYLENOL, UNK, UNK [Suspect]
     Indication: TOOTHACHE
     Dosage: DAILY, ORAL
     Route: 048

REACTIONS (1)
  - RECTAL HAEMORRHAGE [None]
